FAERS Safety Report 24424163 (Version 1)
Quarter: 2024Q4

REPORT INFORMATION
  Report Type: Spontaneous
  Country: FR (occurrence: FR)
  Receive Date: 20241010
  Receipt Date: 20241010
  Transmission Date: 20250115
  Serious: Yes (Hospitalization, Other)
  Sender: BAXTER
  Company Number: None

PATIENT
  Age: 64 Year
  Sex: Male

DRUGS (1)
  1. OLIMEL E [Suspect]
     Active Substance: AMINO ACIDS\DEXTROSE\ELECTROLYTES NOS\SOYBEAN OIL
     Indication: Starvation
     Dosage: (DURATION: 17 DAYS) 1 DOSAGE FORM 1 DAY
     Route: 042
     Dates: start: 20240708, end: 20240725

REACTIONS (3)
  - Dermo-hypodermitis [Recovered/Resolved]
  - Superficial vein thrombosis [Recovered/Resolved]
  - Injection site extravasation [Recovered/Resolved]

NARRATIVE: CASE EVENT DATE: 20240715
